FAERS Safety Report 6474592-5 (Version None)
Quarter: 2009Q4

REPORT INFORMATION
  Report Type: 
  Country: None (occurrence: None)
  Receive Date: 20091204
  Receipt Date: 20090129
  Transmission Date: 20100525
  Serious: Yes (Other)
  Sender: FDA-Public Use
  Company Number: US-ELI_LILLY_AND_COMPANY-US200901005626

PATIENT
  Sex: Male

DRUGS (2)
  1. HUMULIN R [Suspect]
  2. HUMULIN N [Suspect]

REACTIONS (5)
  - DIABETIC VASCULAR DISORDER [None]
  - HAND AMPUTATION [None]
  - INFECTION [None]
  - LEG AMPUTATION [None]
  - PRODUCT QUALITY ISSUE [None]
